FAERS Safety Report 25566823 (Version 1)
Quarter: 2025Q3

REPORT INFORMATION
  Report Type: Spontaneous
  Country: US (occurrence: None)
  Receive Date: 20250715
  Receipt Date: 20250715
  Transmission Date: 20251021
  Serious: Yes (Other)
  Sender: FDA-CTU
  Company Number: None

PATIENT
  Age: 39 Year
  Sex: Male
  Weight: 94.5 kg

DRUGS (1)
  1. ROPINIROLE [Suspect]
     Active Substance: ROPINIROLE
     Indication: Restless legs syndrome
     Dates: start: 20241210, end: 20250301

REACTIONS (2)
  - Visual impairment [None]
  - Visual acuity reduced [None]

NARRATIVE: CASE EVENT DATE: 20241216
